FAERS Safety Report 26133570 (Version 2)
Quarter: 2025Q4

REPORT INFORMATION
  Report Type: Report from Study
  Country: JP (occurrence: JP)
  Receive Date: 20251209
  Receipt Date: 20251224
  Transmission Date: 20260118
  Serious: Yes (Hospitalization)
  Sender: UCB
  Company Number: JP-UCBJ-CD202513460UCBPHAPROD

PATIENT
  Age: 38 Year
  Weight: 92.3 kg

DRUGS (11)
  1. FENFLURAMINE HYDROCHLORIDE [Suspect]
     Active Substance: FENFLURAMINE HYDROCHLORIDE
     Indication: Lennox-Gastaut syndrome
     Dosage: 0.08 MILLIGRAM/KILOGRAM, 2X/DAY (BID)
     Route: 061
  2. VIMPAT [Concomitant]
     Active Substance: LACOSAMIDE
     Indication: Lennox-Gastaut syndrome
     Dosage: 800 MILLIGRAM, DAILY
     Route: 061
  3. INOVELON [Concomitant]
     Active Substance: RUFINAMIDE
     Indication: Lennox-Gastaut syndrome
     Dosage: 2400 MILLIGRAM, DAILY
     Route: 061
  4. DEPAKENE [Concomitant]
     Active Substance: VALPROIC ACID
     Indication: Lennox-Gastaut syndrome
     Dosage: 800 MILLIGRAM, DAILY
     Route: 061
  5. DIACOMIT [Concomitant]
     Active Substance: STIRIPENTOL
     Indication: Lennox-Gastaut syndrome
     Dosage: 1000 MILLIGRAM, DAILY
     Route: 061
  6. DIACOMIT [Concomitant]
     Active Substance: STIRIPENTOL
     Dosage: 500 MILLIGRAM, DAILY
     Route: 061
  7. MYSTAN [Concomitant]
     Active Substance: CLOBAZAM
     Indication: Lennox-Gastaut syndrome
     Dosage: 2.5 MILLIGRAM, DAILY
     Route: 061
  8. DIAZEPAM [Concomitant]
     Active Substance: DIAZEPAM
     Indication: Lennox-Gastaut syndrome
     Dosage: 5 MILLIGRAM, DAILY
     Route: 061
  9. ARIPIPRAZOLE [Concomitant]
     Active Substance: ARIPIPRAZOLE
     Indication: Product used for unknown indication
     Dosage: 12 MILLIGRAM, DAILY
     Route: 061
  10. PHENYTOIN SODIUM [Concomitant]
     Active Substance: PHENYTOIN SODIUM
     Indication: Lennox-Gastaut syndrome
     Dosage: 150 MILLIGRAM, DAILY
     Route: 061
  11. RISEDRONATE SODIUM [Concomitant]
     Active Substance: RISEDRONATE SODIUM
     Indication: Product used for unknown indication
     Dosage: 75 MILLIGRAM, DAILY
     Route: 061

REACTIONS (4)
  - Ankle fracture [Unknown]
  - Somnolence [Recovered/Resolved]
  - Prescribed underdose [Unknown]
  - Off label use [Unknown]
